FAERS Safety Report 10949080 (Version 1)
Quarter: 2015Q1

REPORT INFORMATION
  Report Type: Spontaneous
  Country: None (occurrence: None)
  Receive Date: 20150323
  Receipt Date: 20150323
  Transmission Date: 20150721
  Serious: No
  Sender: FDA-Public Use
  Company Number: None

PATIENT
  Age: 88 Year
  Sex: Female

DRUGS (1)
  1. XARELTO [Suspect]
     Active Substance: RIVAROXABAN
     Indication: TRANSIENT ISCHAEMIC ATTACK
     Dosage: AT LEAST SINCE 8/15/2014, XARETLTO 15MG TAB, ONE DAILY, BY MOUTH
     Route: 048

REACTIONS (5)
  - Retinal haemorrhage [None]
  - Transient ischaemic attack [None]
  - Post procedural complication [None]
  - Memory impairment [None]
  - Visual acuity reduced [None]

NARRATIVE: CASE EVENT DATE: 201407
